FAERS Safety Report 13036162 (Version 1)
Quarter: 2016Q4

REPORT INFORMATION
  Report Type: Spontaneous
  Country: JP (occurrence: JP)
  Receive Date: 20161216
  Receipt Date: 20161216
  Transmission Date: 20170207
  Serious: Yes (Death, Other)
  Sender: FDA-Public Use
  Company Number: JP-ELI_LILLY_AND_COMPANY-JP201612002587

PATIENT
  Age: 74 Year
  Sex: Male

DRUGS (2)
  1. ALIMTA [Suspect]
     Active Substance: PEMETREXED DISODIUM
     Indication: NON-SMALL CELL LUNG CANCER STAGE IV
     Route: 042
  2. CISPLATIN. [Concomitant]
     Active Substance: CISPLATIN
     Indication: NON-SMALL CELL LUNG CANCER STAGE IV

REACTIONS (7)
  - Pneumonia [Recovering/Resolving]
  - Hypoalbuminaemia [Unknown]
  - Cardio-respiratory arrest [Fatal]
  - Tumour lysis syndrome [Recovering/Resolving]
  - Neutrophil count decreased [Unknown]
  - Cardiac failure [Recovering/Resolving]
  - Hypophagia [Unknown]
